FAERS Safety Report 4480287-X (Version None)
Quarter: 2004Q3

REPORT INFORMATION
  Report Type: 
  Country: None (occurrence: None)
  Receive Date: 20040923
  Receipt Date: 20040707
  Transmission Date: 20050211
  Serious: No
  Sender: FDA-Public Use
  Company Number: USA040566828

PATIENT
  Age: 65 Year
  Sex: Female

DRUGS (2)
  1. FORTEO [Suspect]
     Indication: OSTEOPOROSIS
     Dosage: 20 UG/1 DAY
     Dates: start: 20040406, end: 20040503
  2. CITRACAL (CALCIUM CITRATE) [Concomitant]

REACTIONS (3)
  - BACK PAIN [None]
  - BLOOD CALCIUM INCREASED [None]
  - MUSCLE SPASMS [None]
